FAERS Safety Report 4699000-6 (Version None)
Quarter: 2005Q2

REPORT INFORMATION
  Report Type: 
  Country: None (occurrence: None)
  Receive Date: 20050622
  Receipt Date: 20050622
  Transmission Date: 20051028
  Serious: Yes (Other)
  Sender: FDA-Public Use
  Company Number: None

PATIENT
  Age: 15 Year
  Sex: Female
  Weight: 65.318 kg

DRUGS (1)
  1. SCARGUARD 0.5OZ RED ROCK LABORATORIES , INC [Suspect]
     Indication: SCAR
     Dosage: TWICE DAILY TOPICAL
     Route: 061
     Dates: start: 20050609, end: 20050619

REACTIONS (9)
  - APPLICATION SITE ERYTHEMA [None]
  - APPLICATION SITE INFLAMMATION [None]
  - APPLICATION SITE REACTION [None]
  - INCISION SITE COMPLICATION [None]
  - INCISIONAL DRAINAGE [None]
  - MEDICATION ERROR [None]
  - PHARMACEUTICAL PRODUCT COMPLAINT [None]
  - POSTOPERATIVE INFECTION [None]
  - WOUND DEHISCENCE [None]
